FAERS Safety Report 11157250 (Version 3)
Quarter: 2015Q4

REPORT INFORMATION
  Report Type: Spontaneous
  Country: US (occurrence: US)
  Receive Date: 20150602
  Receipt Date: 20151102
  Transmission Date: 20160304
  Serious: Yes (Death, Hospitalization, Disabling)
  Sender: FDA-Public Use
  Company Number: US-ENDO PHARMACEUTICALS INC.-201411137

PATIENT
  Age: 70 Year
  Sex: Male
  Weight: 72.64 kg

DRUGS (2)
  1. TESTOPEL [Suspect]
     Active Substance: TESTOSTERONE
     Indication: BLOOD TESTOSTERONE DECREASED
     Route: 058
     Dates: start: 20130814, end: 20140119
  2. ANDROGEL [Suspect]
     Active Substance: TESTOSTERONE
     Indication: BLOOD TESTOSTERONE DECREASED
     Route: 065
     Dates: start: 20110825, end: 20120217

REACTIONS (6)
  - Gastrointestinal disorder [Fatal]
  - Transient ischaemic attack [Unknown]
  - Cerebrovascular accident [Unknown]
  - Sepsis [Fatal]
  - Cerebral haemorrhage [Not Recovered/Not Resolved]
  - Multi-organ failure [Fatal]

NARRATIVE: CASE EVENT DATE: 20120127
